FAERS Safety Report 11068213 (Version 1)
Quarter: 2015Q2

REPORT INFORMATION
  Report Type: Spontaneous
  Country: US (occurrence: US)
  Receive Date: 20150427
  Receipt Date: 20150427
  Transmission Date: 20150821
  Serious: No
  Sender: FDA-Public Use
  Company Number: US-SHIRE-US201503644

PATIENT
  Sex: Male
  Weight: 86.17 kg

DRUGS (3)
  1. PRAVASTATIN [Concomitant]
     Active Substance: PRAVASTATIN\PRAVASTATIN SODIUM
     Indication: BLOOD CHOLESTEROL ABNORMAL
     Dosage: 40 MG, 1X/DAY:QD, DAILY
     Route: 048
     Dates: start: 2008
  2. OMEPRAZOLE. [Concomitant]
     Active Substance: OMEPRAZOLE
     Indication: GASTROOESOPHAGEAL REFLUX DISEASE
     Dosage: 40 MG, 1X/DAY:QD, DAILY
     Route: 048
     Dates: start: 2014
  3. LIALDA [Suspect]
     Active Substance: MESALAMINE
     Indication: CROHN^S DISEASE
     Dosage: 4.8 G, 1X/DAY:QD, (FOUR 1.2 G TABLETS)
     Route: 048
     Dates: start: 2012, end: 20150419

REACTIONS (3)
  - Dry mouth [Not Recovered/Not Resolved]
  - Off label use [Recovered/Resolved]
  - Sensation of foreign body [Not Recovered/Not Resolved]

NARRATIVE: CASE EVENT DATE: 2012
